FAERS Safety Report 5762869-8 (Version None)
Quarter: 2008Q2

REPORT INFORMATION
  Report Type: 
  Country: None (occurrence: None)
  Receive Date: 20080609
  Receipt Date: 20080529
  Transmission Date: 20081010
  Serious: Yes (Other)
  Sender: FDA-Public Use
  Company Number: US-JNJFOC-20080206512

PATIENT
  Sex: Female

DRUGS (19)
  1. DURAGESIC-100 [Suspect]
     Indication: DRUG USE FOR UNKNOWN INDICATION
     Route: 062
  2. DIOVAN [Concomitant]
     Dosage: EVERY MORNING
     Route: 048
  3. ALPRAZOLAM [Concomitant]
     Route: 048
  4. CELEBREX [Concomitant]
     Indication: PAIN
     Dosage: IN THE MORNING
     Route: 048
  5. TIMOPTIC-XE [Concomitant]
     Dosage: IN BOTH EYES
  6. CALTRATE PLUS [Concomitant]
     Dosage: 600-200 MG-UNIT
     Route: 048
  7. NITROGLYCERIN [Concomitant]
     Dosage: AS DIRECTED
     Route: 060
  8. NASONEX [Concomitant]
     Dosage: 50UG/ACT, 2 SPRAYS IN EACH NOSTRIL AT HOUR OF SLEEP
     Route: 045
  9. ANUSOL HC [Concomitant]
     Route: 054
  10. ANUSOL HC [Concomitant]
     Route: 054
  11. METOPROLOL SUCCINATE [Concomitant]
     Dosage: EVERY MORNING
     Route: 048
  12. SIMVASTATIN [Concomitant]
     Route: 048
  13. CARDIZEM CD [Concomitant]
     Dosage: EVERY MORNING
     Route: 048
  14. DILTIAZEM HCL [Concomitant]
     Route: 048
  15. SYNTHROID [Concomitant]
     Dosage: EVERY MORNING
     Route: 048
  16. PREVACID [Concomitant]
     Route: 048
  17. WARFARIN SODIUM [Concomitant]
     Dosage: 1 EVERY DAY, AND HALF EVERY SATURDAY
     Route: 048
  18. CIPROFLOXACIN HCL [Concomitant]
     Route: 048
  19. RESTORIL [Concomitant]
     Route: 048

REACTIONS (1)
  - MACULAR DEGENERATION [None]
